FAERS Safety Report 23934345 (Version 4)
Quarter: 2025Q4

REPORT INFORMATION
  Report Type: Spontaneous
  Country: US (occurrence: US)
  Receive Date: 20240603
  Receipt Date: 20251014
  Transmission Date: 20260117
  Serious: No
  Sender: Kenvue
  Company Number: US-JNJFOC-20240548886

PATIENT
  Sex: Female

DRUGS (2)
  1. MENS ROGAINE EXTRA STRENGTH [Suspect]
     Active Substance: MINOXIDIL
     Indication: Alopecia
     Dosage: A CAP OF IT ONCE A DAY
     Route: 061
     Dates: start: 20240201
  2. MENS ROGAINE EXTRA STRENGTH [Suspect]
     Active Substance: MINOXIDIL
     Dosage: A CAP OF IT ONCE A DAY
     Route: 061
     Dates: start: 20240201

REACTIONS (5)
  - Off label use [Unknown]
  - Overdose [Unknown]
  - Product container issue [Unknown]
  - Suspected counterfeit product [Unknown]
  - Poor quality product administered [Unknown]

NARRATIVE: CASE EVENT DATE: 20240101
